FAERS Safety Report 16369895 (Version 1)
Quarter: 2019Q2

REPORT INFORMATION
  Report Type: Spontaneous
  Country: TR (occurrence: TR)
  Receive Date: 20190530
  Receipt Date: 20190530
  Transmission Date: 20190711
  Serious: Yes (Hospitalization)
  Sender: FDA-Public Use
  Company Number: TR-009507513-1905TUR011862

PATIENT
  Age: 15 Year
  Sex: Male

DRUGS (4)
  1. BETAMETHASONE DIPROPIONATE (+) BETAMETHASONE SODIUM PHOSPHATE [Suspect]
     Active Substance: BETAMETHASONE DIPROPIONATE\BETAMETHASONE SODIUM PHOSPHATE
     Indication: NERVE BLOCK
  2. LIDOCAINE HYDROCHLORIDE. [Concomitant]
     Active Substance: LIDOCAINE HYDROCHLORIDE
     Indication: CLUSTER HEADACHE
     Dosage: 10 MILLIGRAM, ONCE
  3. BETAMETHASONE DIPROPIONATE (+) BETAMETHASONE SODIUM PHOSPHATE [Suspect]
     Active Substance: BETAMETHASONE DIPROPIONATE\BETAMETHASONE SODIUM PHOSPHATE
     Indication: CLUSTER HEADACHE
     Dosage: 12.86 MG BETAMETHASONE DIPROPIONATE + 5.26 MG BETAMETHASONE SODIUM PHOSPHATE
  4. LIDOCAINE HYDROCHLORIDE. [Concomitant]
     Active Substance: LIDOCAINE HYDROCHLORIDE
     Indication: NERVE BLOCK

REACTIONS (1)
  - Injection site atrophy [Unknown]
